FAERS Safety Report 6164356-4 (Version None)
Quarter: 2009Q2

REPORT INFORMATION
  Report Type: 
  Country: None (occurrence: None)
  Receive Date: 20090420
  Receipt Date: 20090416
  Transmission Date: 20091009
  Serious: Yes (Life-Threatening)
  Sender: FDA-Public Use
  Company Number: 2009SP008137

PATIENT
  Sex: Male

DRUGS (1)
  1. TEMODAL [Suspect]
     Indication: EPENDYMOMA MALIGNANT
     Dosage: 120 MG;QD;PO
     Route: 048
     Dates: start: 20090305, end: 20090323

REACTIONS (1)
  - PNEUMONIA [None]
